FAERS Safety Report 10931979 (Version 1)
Quarter: 2015Q1

REPORT INFORMATION
  Report Type: Spontaneous
  Country: US (occurrence: US)
  Receive Date: 20150319
  Receipt Date: 20150319
  Transmission Date: 20150721
  Serious: No
  Sender: FDA-Public Use
  Company Number: US-009507513-1503USA002652

PATIENT
  Sex: Female

DRUGS (1)
  1. ASMANEX [Suspect]
     Active Substance: MOMETASONE FUROATE
     Indication: ASTHMA
     Dosage: 2 PUFFS BY MONTH, TWO TIMES A DAY, STRENGTH REPORTED AS: 220 Y
     Route: 055

REACTIONS (3)
  - Inappropriate schedule of drug administration [Unknown]
  - Drug administration error [Unknown]
  - No adverse event [Unknown]
